FAERS Safety Report 20930927 (Version 1)
Quarter: 2022Q2

REPORT INFORMATION
  Report Type: Spontaneous
  Country: US (occurrence: US)
  Receive Date: 20220608
  Receipt Date: 20220608
  Transmission Date: 20220721
  Serious: Yes (Death, Life-Threatening, Hospitalization)
  Sender: FDA-Public Use
  Company Number: US-MYLANLABS-2022M1042721

PATIENT
  Age: 34 Year
  Sex: Female

DRUGS (10)
  1. DIPHENHYDRAMINE [Suspect]
     Active Substance: DIPHENHYDRAMINE
     Indication: Pain
     Dosage: SHE WAS OBSERVED ATTEMPTING TO CRUSH HER PRESCRIBED OXYCODONE AND DIPHENHYDRAMINE TO SELF-ADMINISTER
     Route: 042
  2. DOXYCYCLINE [Suspect]
     Active Substance: DOXYCYCLINE
     Indication: Escherichia infection
     Dosage: UNK
  3. DOXYCYCLINE [Suspect]
     Active Substance: DOXYCYCLINE
     Indication: Staphylococcal infection
  4. DOXYCYCLINE [Suspect]
     Active Substance: DOXYCYCLINE
     Indication: Sepsis
  5. FLUCONAZOLE [Suspect]
     Active Substance: FLUCONAZOLE
     Indication: Candida infection
     Dosage: UNK
  6. FLUCONAZOLE [Suspect]
     Active Substance: FLUCONAZOLE
     Indication: Sepsis
  7. POTASSIUM CHLORIDE [Suspect]
     Active Substance: POTASSIUM CHLORIDE
     Indication: Electrolyte imbalance
     Dosage: UNK
  8. HYDROMORPHONE [Suspect]
     Active Substance: HYDROMORPHONE
     Indication: Pain
     Dosage: UNK, WAS OBSERVED STORING THE MEDICATION IN HER CHEEK AND BLANKET
  9. OXYCODONE [Suspect]
     Active Substance: OXYCODONE
     Indication: Pain
     Dosage: TO SELF-ADMINISTER THROUGH HER PERIPHERAL INTRAVENOUS LINE
     Route: 042
  10. SODIUM CHLORIDE [Suspect]
     Active Substance: SODIUM CHLORIDE
     Indication: Electrolyte imbalance
     Dosage: UNK

REACTIONS (23)
  - Secondary amyloidosis [Fatal]
  - Pulseless electrical activity [Fatal]
  - Intentional product misuse [Fatal]
  - Drug abuse [Fatal]
  - Incorrect route of product administration [Fatal]
  - Drug ineffective [Unknown]
  - Proteinuria [Unknown]
  - Escherichia infection [Unknown]
  - Staphylococcal infection [Unknown]
  - Candida infection [Unknown]
  - Sepsis [Unknown]
  - Electrolyte imbalance [Unknown]
  - Nutritional condition abnormal [Unknown]
  - Lung disorder [Unknown]
  - Granuloma [Unknown]
  - Fat necrosis [Unknown]
  - Cardiomegaly [Unknown]
  - Myocarditis [Unknown]
  - Cardiac failure [Unknown]
  - Hypothyroidism [Unknown]
  - Abdominal infection [Unknown]
  - Chronic kidney disease [Unknown]
  - Off label use [Unknown]
